FAERS Safety Report 9819282 (Version 4)
Quarter: 2015Q1

REPORT INFORMATION
  Report Type: Spontaneous
  Country: US (occurrence: US)
  Receive Date: 20140115
  Receipt Date: 20150127
  Transmission Date: 20150721
  Serious: Yes (Death, Life-Threatening, Hospitalization, Other)
  Sender: FDA-Public Use
  Company Number: US-009507513-1401USA004872

PATIENT
  Sex: Male
  Weight: 78.46 kg

DRUGS (1)
  1. JANUMET [Suspect]
     Active Substance: METFORMIN HYDROCHLORIDE\SITAGLIPTIN PHOSPHATE
     Indication: TYPE 2 DIABETES MELLITUS
     Dosage: 50-500 MG BID
     Route: 048
     Dates: start: 20100406, end: 20101031

REACTIONS (13)
  - Bladder diverticulum [Unknown]
  - Pain [Not Recovered/Not Resolved]
  - Benign prostatic hyperplasia [Unknown]
  - Splenic vein thrombosis [Not Recovered/Not Resolved]
  - Pancreatic carcinoma metastatic [Fatal]
  - Metastases to liver [Not Recovered/Not Resolved]
  - Nephrolithiasis [Not Recovered/Not Resolved]
  - Constipation [Unknown]
  - Dehydration [Not Recovered/Not Resolved]
  - Urinary retention [Unknown]
  - Flatulence [Unknown]
  - Dyslipidaemia [Unknown]
  - Metastases to bone [Not Recovered/Not Resolved]

NARRATIVE: CASE EVENT DATE: 201006
